FAERS Safety Report 9586878 (Version 1)
Quarter: 2013Q4

REPORT INFORMATION
  Report Type: Spontaneous
  Country: US (occurrence: US)
  Receive Date: 20131003
  Receipt Date: 20131003
  Transmission Date: 20140711
  Serious: Yes (Hospitalization)
  Sender: FDA-Public Use
  Company Number: US-SA-2013SA095240

PATIENT
  Sex: Male

DRUGS (1)
  1. FABRAZYME [Suspect]
     Indication: FABRY^S DISEASE
     Route: 042

REACTIONS (1)
  - Nonspecific reaction [Unknown]
